FAERS Safety Report 5355334-3 (Version None)
Quarter: 2007Q2

REPORT INFORMATION
  Report Type: 
  Country: None (occurrence: None)
  Receive Date: 20070611
  Receipt Date: 20070604
  Transmission Date: 20071010
  Serious: Yes (Other)
  Sender: FDA-Public Use
  Company Number: 07-134

PATIENT
  Age: 52 Year
  Sex: Female

DRUGS (10)
  1. ERGOCALCIFEROL [Suspect]
     Indication: HYPOPARATHYROIDISM
     Dosage: 2 CAPSULES/WEEKLY
     Dates: start: 20050101, end: 20070510
  2. BENTYL [Concomitant]
  3. BUSPAR [Concomitant]
  4. PREVACID [Concomitant]
  5. SINGULAIR [Concomitant]
  6. SYNTHROID [Concomitant]
  7. XANAX [Concomitant]
  8. ACETAMINOPHEN W/ CODEINE [Concomitant]
  9. ... [Concomitant]
  10. BENADRYL [Concomitant]

REACTIONS (13)
  - BLOOD CALCIUM ABNORMAL [None]
  - CHAPPED LIPS [None]
  - DIZZINESS [None]
  - DRY MOUTH [None]
  - GASTROINTESTINAL PAIN [None]
  - GRANULOMATOUS LIVER DISEASE [None]
  - HAEMATOCHEZIA [None]
  - HEADACHE [None]
  - MUSCULAR WEAKNESS [None]
  - POLLAKIURIA [None]
  - PRURITUS GENERALISED [None]
  - URTICARIA [None]
  - VERTIGO [None]
